FAERS Safety Report 17026103 (Version 2)
Quarter: 2019Q4

REPORT INFORMATION
  Report Type: Spontaneous
  Country: NO (occurrence: NO)
  Receive Date: 20191113
  Receipt Date: 20191220
  Transmission Date: 20200122
  Serious: Yes (Other)
  Sender: FDA-Public Use
  Company Number: NO-GEHC-2019CSU005677

PATIENT

DRUGS (2)
  1. OMNIPAQUE [Suspect]
     Active Substance: IOHEXOL
     Indication: CHEST PAIN
  2. OMNIPAQUE [Suspect]
     Active Substance: IOHEXOL
     Indication: ANGIOCARDIOGRAM
     Dosage: UNK UNK, SINGLE
     Route: 042
     Dates: start: 20191104, end: 20191104

REACTIONS (4)
  - Somnolence [Recovered/Resolved]
  - Vision blurred [Unknown]
  - Nausea [Recovered/Resolved]
  - Hypotonia [Unknown]

NARRATIVE: CASE EVENT DATE: 201911
